FAERS Safety Report 4759226-X (Version None)
Quarter: 2005Q3

REPORT INFORMATION
  Report Type: 
  Country: None (occurrence: None)
  Receive Date: 20050831
  Receipt Date: 20050819
  Transmission Date: 20060218
  Serious: No
  Sender: FDA-Public Use
  Company Number: CA_050808591

PATIENT
  Age: 18 Year
  Sex: Female

DRUGS (3)
  1. ZYPREXA [Suspect]
     Indication: SCHIZOPHRENIA
     Dosage: 5 MG
     Dates: start: 20040801
  2. TOPAMAX [Concomitant]
  3. VALPROIC ACID [Concomitant]

REACTIONS (3)
  - EXTRAPYRAMIDAL DISORDER [None]
  - EYE DISORDER [None]
  - WRONG TECHNIQUE IN DRUG USAGE PROCESS [None]
